FAERS Safety Report 9290174 (Version 1)
Quarter: 2013Q2

REPORT INFORMATION
  Report Type: Spontaneous
  Country: GB (occurrence: GB)
  Receive Date: 20130515
  Receipt Date: 20130515
  Transmission Date: 20140414
  Serious: Yes (Hospitalization)
  Sender: FDA-Public Use
  Company Number: GB-JNJFOC-20130502647

PATIENT
  Age: 52 Year
  Sex: Female

DRUGS (1)
  1. PALIPERIDONE PALMITATE [Suspect]
     Indication: SCHIZOPHRENIA
     Route: 030
     Dates: start: 20130101

REACTIONS (5)
  - Hyponatraemia [Recovering/Resolving]
  - Convulsion [Unknown]
  - Head injury [Unknown]
  - Water intoxication [Recovering/Resolving]
  - Dry mouth [Recovering/Resolving]
